FAERS Safety Report 5739375-X (Version None)
Quarter: 2008Q2

REPORT INFORMATION
  Report Type: 
  Country: None (occurrence: None)
  Receive Date: 20080515
  Receipt Date: 20080508
  Transmission Date: 20081010
  Serious: Yes (Death)
  Sender: FDA-Public Use
  Company Number: GB-SANOFI-SYNTHELABO-F01200800811

PATIENT
  Sex: Male

DRUGS (2)
  1. XELODA [Suspect]
     Route: 048
     Dates: start: 20080130, end: 20080130
  2. OXALIPLATIN [Suspect]
     Indication: COLORECTAL CANCER METASTATIC
     Route: 041
     Dates: start: 20080130, end: 20080130

REACTIONS (1)
  - INTESTINAL ISCHAEMIA [None]
